FAERS Safety Report 7770185-8 (Version None)
Quarter: 2011Q3

REPORT INFORMATION
  Report Type: 
  Country: None (occurrence: None)
  Receive Date: 20110922
  Receipt Date: 20110209
  Transmission Date: 20111222
  Serious: No
  Sender: FDA-Public Use
  Company Number: US-ASTRAZENECA-2011SE07910

PATIENT
  Age: 53 Year
  Sex: Female
  Weight: 68 kg

DRUGS (2)
  1. SEROQUEL [Suspect]
     Indication: BIPOLAR DISORDER
     Dosage: AT NIGHT
     Route: 048
     Dates: start: 20100101, end: 20110206
  2. SEROQUEL [Suspect]
     Route: 048
     Dates: start: 20110207

REACTIONS (4)
  - MOOD ALTERED [None]
  - MEMORY IMPAIRMENT [None]
  - ANKLE FRACTURE [None]
  - AGGRESSION [None]
